FAERS Safety Report 18744891 (Version 1)
Quarter: 2021Q1

REPORT INFORMATION
  Report Type: Spontaneous
  Country: US (occurrence: US)
  Receive Date: 20210114
  Receipt Date: 20210114
  Transmission Date: 20210419
  Serious: Yes (Other)
  Sender: FDA-Public Use
  Company Number: None

PATIENT
  Age: 69 Year
  Sex: Male
  Weight: 102 kg

DRUGS (1)
  1. CHLORHEXIDINE 0.12% ORAL RINSE [Suspect]
     Active Substance: CHLORHEXIDINE
     Indication: ANTIBIOTIC PROPHYLAXIS
     Route: 002
     Dates: start: 20200929, end: 20201021

REACTIONS (3)
  - Recalled product [None]
  - Burkholderia cepacia complex infection [None]
  - Candida pneumonia [None]

NARRATIVE: CASE EVENT DATE: 20201005
